FAERS Safety Report 6898554-9 (Version None)
Quarter: 2010Q3

REPORT INFORMATION
  Report Type: 
  Country: None (occurrence: None)
  Receive Date: 20100802
  Receipt Date: 20071030
  Transmission Date: 20110219
  Serious: No
  Sender: FDA-Public Use
  Company Number: US-PFIZER INC-2007092279

PATIENT
  Sex: Female
  Weight: 86.2 kg

DRUGS (2)
  1. LYRICA [Suspect]
     Indication: PAIN
     Route: 048
     Dates: start: 20071001
  2. PERCODAN-DEMI [Concomitant]
     Indication: PAIN

REACTIONS (1)
  - CONSTIPATION [None]
